FAERS Safety Report 15086555 (Version 1)
Quarter: 2018Q2

REPORT INFORMATION
  Report Type: Report from Study
  Country: US (occurrence: US)
  Receive Date: 20180628
  Receipt Date: 20180628
  Transmission Date: 20180711
  Serious: No
  Sender: FDA-Public Use
  Company Number: US-AMGEN-USASL2017120888

PATIENT
  Age: 69 Year
  Sex: Female

DRUGS (5)
  1. PROLIA [Suspect]
     Active Substance: DENOSUMAB
     Indication: OSTEOPOROTIC FRACTURE
     Dosage: 60 MG, Q6MO
     Route: 058
     Dates: start: 2016
  2. PROLIA [Suspect]
     Active Substance: DENOSUMAB
     Indication: PATHOLOGICAL FRACTURE
  3. VITAMIN D3 [Concomitant]
     Active Substance: CHOLECALCIFEROL
     Dosage: 800 IU, BID
  4. CALCIUM [Concomitant]
     Active Substance: CALCIUM
     Dosage: 600 MG, BID
  5. VITAMIN D [Concomitant]
     Active Substance: CHOLECALCIFEROL
     Dosage: UNK
     Dates: start: 2016

REACTIONS (14)
  - Headache [Unknown]
  - Swelling [Unknown]
  - Muscle spasms [Unknown]
  - Pain [Unknown]
  - Gait disturbance [Unknown]
  - Pollakiuria [Unknown]
  - Paraesthesia [Unknown]
  - Visual impairment [Unknown]
  - Dyspnoea [Unknown]
  - Diarrhoea [Unknown]
  - Temperature intolerance [Unknown]
  - Joint swelling [Unknown]
  - Weight increased [Unknown]
  - Off label use [Unknown]
